FAERS Safety Report 20912461 (Version 1)
Quarter: 2022Q2

REPORT INFORMATION
  Report Type: Spontaneous
  Country: US (occurrence: US)
  Receive Date: 20220603
  Receipt Date: 20220603
  Transmission Date: 20220721
  Serious: Yes (Other)
  Sender: FDA-Public Use
  Company Number: US-HLS-202200437

PATIENT
  Age: 45 Year
  Sex: Male

DRUGS (2)
  1. CLOZARIL [Suspect]
     Active Substance: CLOZAPINE
     Indication: Schizoaffective disorder
     Route: 065
  2. CLOZARIL [Suspect]
     Active Substance: CLOZAPINE
     Indication: Schizoaffective disorder
     Dosage: TWICE DAILY, SINCE MANY YEARS
     Route: 065

REACTIONS (6)
  - COVID-19 [Unknown]
  - Psychiatric decompensation [Unknown]
  - Hypomania [Unknown]
  - Prescribed overdose [Unknown]
  - Delusion [Unknown]
  - Drug effect less than expected [Unknown]
